FAERS Safety Report 7231414-2 (Version None)
Quarter: 2011Q1

REPORT INFORMATION
  Report Type: 
  Country: None (occurrence: None)
  Receive Date: 20110118
  Receipt Date: 20110112
  Transmission Date: 20110831
  Serious: Yes (Hospitalization)
  Sender: FDA-Public Use
  Company Number: US-ROXANE LABORATORIES, INC.-2011-RO-00061RO

PATIENT
  Age: 69 Year
  Sex: Female

DRUGS (1)
  1. FUROSEMIDE [Suspect]
     Indication: FLUID RETENTION
     Dosage: 120 MG
     Route: 048

REACTIONS (2)
  - FLUID RETENTION [None]
  - DRUG INEFFECTIVE [None]
